FAERS Safety Report 5946506-5 (Version None)
Quarter: 2008Q4

REPORT INFORMATION
  Report Type: 
  Country: None (occurrence: None)
  Receive Date: 20081110
  Receipt Date: 20081031
  Transmission Date: 20090506
  Serious: Yes (Other)
  Sender: FDA-Public Use
  Company Number: B0540868A

PATIENT
  Age: 73 Year
  Sex: Female
  Weight: 65 kg

DRUGS (5)
  1. ARIXTRA [Suspect]
     Indication: THROMBOSIS PROPHYLAXIS
     Dosage: 2.5MG PER DAY
     Route: 058
     Dates: start: 20081001, end: 20081014
  2. OSTELUC [Suspect]
     Indication: ANALGESIA
     Dosage: 200MG TWICE PER DAY
     Route: 048
     Dates: start: 20080924
  3. VOLTAREN [Suspect]
     Indication: ANALGESIA
     Dosage: 50MG TWICE PER DAY
     Route: 054
     Dates: start: 20081001, end: 20081001
  4. ROPION [Suspect]
     Indication: ANALGESIA
     Dosage: 50MG TWICE PER DAY
     Route: 065
     Dates: start: 20081001, end: 20081005
  5. NITRODERM [Concomitant]
     Dosage: 25MG PER DAY
     Route: 062
     Dates: start: 20080924

REACTIONS (5)
  - ANAEMIA [None]
  - HAEMATOCHEZIA [None]
  - HAEMOGLOBIN DECREASED [None]
  - RED BLOOD CELL COUNT DECREASED [None]
  - UPPER GASTROINTESTINAL HAEMORRHAGE [None]
